FAERS Safety Report 5494349-1 (Version None)
Quarter: 2007Q4

REPORT INFORMATION
  Report Type: 
  Country: None (occurrence: None)
  Receive Date: 20071015
  Receipt Date: 20070803
  Transmission Date: 20080405
  Serious: Yes (Other)
  Sender: FDA-Public Use
  Company Number: S07-USA-03344-01

PATIENT
  Sex: Male

DRUGS (2)
  1. LEXAPRO [Suspect]
  2. TRAZODONE HCL [Suspect]

REACTIONS (6)
  - AGITATION [None]
  - DEPRESSION [None]
  - HOSTILITY [None]
  - HYPERHIDROSIS [None]
  - MANIA [None]
  - THINKING ABNORMAL [None]
